FAERS Safety Report 7542998-9 (Version None)
Quarter: 2011Q2

REPORT INFORMATION
  Report Type: 
  Country: None (occurrence: None)
  Receive Date: 20110613
  Receipt Date: 20110531
  Transmission Date: 20111010
  Serious: Yes (Other)
  Sender: FDA-Public Use
  Company Number: PHHY2011JP48608

PATIENT

DRUGS (2)
  1. AFINITOR [Suspect]
     Dosage: 5 MG, UNK
     Route: 048
  2. AFINITOR [Suspect]
     Indication: RENAL CELL CARCINOMA
     Dosage: 10 MG, UNK
     Route: 048

REACTIONS (2)
  - BONE MARROW FAILURE [None]
  - PLATELET COUNT DECREASED [None]
